FAERS Safety Report 23527362 (Version 3)
Quarter: 2025Q2

REPORT INFORMATION
  Report Type: Spontaneous
  Country: PT (occurrence: PT)
  Receive Date: 20240215
  Receipt Date: 20250623
  Transmission Date: 20250717
  Serious: Yes (Hospitalization, Other)
  Sender: MYLAN
  Company Number: PT-CDSU_IT-PT-MEN-093392

PATIENT
  Age: 61 Year
  Sex: Male

DRUGS (20)
  1. OXALIPLATIN [Suspect]
     Active Substance: OXALIPLATIN
     Indication: Adenocarcinoma gastric
  2. OXALIPLATIN [Suspect]
     Active Substance: OXALIPLATIN
     Indication: Metastases to peritoneum
     Route: 065
  3. OXALIPLATIN [Suspect]
     Active Substance: OXALIPLATIN
     Route: 065
  4. OXALIPLATIN [Suspect]
     Active Substance: OXALIPLATIN
  5. FLUOROURACIL [Interacting]
     Active Substance: FLUOROURACIL
     Indication: Adenocarcinoma gastric
  6. FLUOROURACIL [Interacting]
     Active Substance: FLUOROURACIL
     Indication: Metastases to peritoneum
     Route: 065
  7. FLUOROURACIL [Interacting]
     Active Substance: FLUOROURACIL
     Route: 065
  8. FLUOROURACIL [Interacting]
     Active Substance: FLUOROURACIL
  9. BRIVUDINE [Interacting]
     Active Substance: BRIVUDINE
     Indication: Herpes zoster
  10. BRIVUDINE [Interacting]
     Active Substance: BRIVUDINE
     Indication: Adenocarcinoma gastric
  11. BRIVUDINE [Interacting]
     Active Substance: BRIVUDINE
     Indication: Metastases to peritoneum
     Route: 065
  12. BRIVUDINE [Interacting]
     Active Substance: BRIVUDINE
     Route: 065
  13. BRIVUDINE [Interacting]
     Active Substance: BRIVUDINE
  14. BRIVUDINE [Interacting]
     Active Substance: BRIVUDINE
  15. BRIVUDINE [Interacting]
     Active Substance: BRIVUDINE
     Route: 065
  16. BRIVUDINE [Interacting]
     Active Substance: BRIVUDINE
     Route: 065
  17. LEUCOVORIN [Concomitant]
     Active Substance: LEUCOVORIN\LEUCOVORIN CALCIUM
     Indication: Adenocarcinoma gastric
  18. LEUCOVORIN [Concomitant]
     Active Substance: LEUCOVORIN\LEUCOVORIN CALCIUM
     Indication: Metastases to peritoneum
     Route: 065
  19. LEUCOVORIN [Concomitant]
     Active Substance: LEUCOVORIN\LEUCOVORIN CALCIUM
     Route: 065
  20. LEUCOVORIN [Concomitant]
     Active Substance: LEUCOVORIN\LEUCOVORIN CALCIUM

REACTIONS (11)
  - Thrombocytopenia [Unknown]
  - Neutropenia [Unknown]
  - Mucosal inflammation [Unknown]
  - Odynophagia [Recovering/Resolving]
  - Weight decreased [Recovering/Resolving]
  - Food intolerance [Recovering/Resolving]
  - Erythema [Recovering/Resolving]
  - Alopecia [Unknown]
  - Labelled drug-drug interaction issue [Unknown]
  - Contraindicated product administered [Unknown]
  - Drug interaction [Unknown]
